FAERS Safety Report 13283947 (Version 3)
Quarter: 2018Q1

REPORT INFORMATION
  Report Type: Spontaneous
  Country: US (occurrence: US)
  Receive Date: 20170301
  Receipt Date: 20180319
  Transmission Date: 20180508
  Serious: Yes (Hospitalization, Other)
  Sender: FDA-Public Use
  Company Number: US-PFIZER INC-2017083873

PATIENT
  Age: 51 Year
  Sex: Female
  Weight: 86 kg

DRUGS (4)
  1. WARFARIN [Concomitant]
     Active Substance: WARFARIN
     Dosage: UNK
  2. IBRANCE [Suspect]
     Active Substance: PALBOCICLIB
     Dosage: 75 MG, CYCLIC (ONE TIME PER DAY, 14 DAYS ON AND 14 DAYS OFF)
     Dates: start: 201608
  3. IBRANCE [Suspect]
     Active Substance: PALBOCICLIB
     Dosage: 75 MG, CYCLIC (FOR 14 DAYS AND 14 DAYS OFF)
     Route: 048
     Dates: start: 20160825
  4. IBRANCE [Suspect]
     Active Substance: PALBOCICLIB
     Indication: BREAST CANCER
     Dosage: 100 MG, CYCLIC (DAILY FOR 21 DAYS FOLLOWED BY 7 DAYS OFF EVERY 28 DAYS)
     Route: 048
     Dates: start: 20160810, end: 20160824

REACTIONS (6)
  - Dyspnoea [Unknown]
  - Cholelithiasis [Unknown]
  - Fatigue [Unknown]
  - Neoplasm progression [Unknown]
  - Bone marrow failure [Unknown]
  - Anaemia [Unknown]

NARRATIVE: CASE EVENT DATE: 201608
